FAERS Safety Report 4882717-8 (Version None)
Quarter: 2005Q4

REPORT INFORMATION
  Report Type: 
  Country: None (occurrence: None)
  Receive Date: 20051201
  Receipt Date: 20050916
  Transmission Date: 20060501
  Serious: No
  Sender: FDA-Public Use
  Company Number: 2005PV002220

PATIENT
  Age: 49 Year
  Sex: Male
  Weight: 113.3993 kg

DRUGS (8)
  1. BYETTA [Suspect]
     Indication: DIABETES MELLITUS NON-INSULIN-DEPENDENT
     Dosage: 5 MCG;BID;SC   10 MCG;BID;SC
     Route: 058
     Dates: start: 20050714, end: 20050801
  2. BYETTA [Suspect]
     Indication: DIABETES MELLITUS NON-INSULIN-DEPENDENT
     Dosage: 5 MCG;BID;SC   10 MCG;BID;SC
     Route: 058
     Dates: start: 20050801
  3. METFORMIN [Concomitant]
  4. ACTOS [Concomitant]
  5. AMARYL [Concomitant]
  6. TRICOR [Concomitant]
  7. TOPROL-XL [Concomitant]
  8. ASPIRIN [Concomitant]

REACTIONS (6)
  - DECREASED APPETITE [None]
  - DRUG EFFECT DECREASED [None]
  - DYSPEPSIA [None]
  - NAUSEA [None]
  - VOMITING [None]
  - WEIGHT DECREASED [None]
